FAERS Safety Report 24533053 (Version 1)
Quarter: 2024Q4

REPORT INFORMATION
  Report Type: Other
  Country: US (occurrence: US)
  Receive Date: 20241022
  Receipt Date: 20241022
  Transmission Date: 20250114
  Serious: Yes (Hospitalization, Other)
  Sender: OMNIVIUM PHARMACEUTICALS LLC
  Company Number: US-Omnivium Pharmaceuticals LLC-2163476

PATIENT
  Age: 53 Year
  Sex: Male

DRUGS (2)
  1. NUMBRINO [Suspect]
     Active Substance: COCAINE HYDROCHLORIDE
     Indication: Product used for unknown indication
  2. LEVAMISOLE [Interacting]
     Active Substance: LEVAMISOLE

REACTIONS (2)
  - Cutaneous vasculitis [Recovering/Resolving]
  - Drug interaction [Unknown]
